FAERS Safety Report 8796816 (Version 2)
Quarter: 2012Q4

REPORT INFORMATION
  Report Type: 
  Country: CA (occurrence: CA)
  Receive Date: 20120919
  Receipt Date: 20121025
  Transmission Date: 20130627
  Serious: Yes (Other)
  Sender: FDA-Public Use
  Company Number: CA-ABBOTT-12P-028-0978862-00

PATIENT
  Age: 43 Year
  Sex: Male

DRUGS (11)
  1. NORVIR [Suspect]
     Indication: HIV INFECTION
  2. FLUTICASONE PROPIONATE [Interacting]
     Indication: PRODUCT USED FOR UNKNOWN INDICATION
     Route: 055
  3. FLUTICASONE W/SALMETEROL [Interacting]
     Indication: PRODUCT USED FOR UNKNOWN INDICATION
     Route: 055
  4. ABACAVIR [Concomitant]
     Indication: HIV INFECTION
  5. LAMIVUDINE [Concomitant]
     Indication: HIV INFECTION
  6. ATAZANAVIR [Concomitant]
     Indication: HIV INFECTION
  7. CITALOPRAM [Concomitant]
     Indication: PRODUCT USED FOR UNKNOWN INDICATION
  8. VALPROATE [Concomitant]
     Indication: PRODUCT USED FOR UNKNOWN INDICATION
  9. METFORMIN [Concomitant]
     Indication: PRODUCT USED FOR UNKNOWN INDICATION
  10. GLYBURIDE [Concomitant]
     Indication: PRODUCT USED FOR UNKNOWN INDICATION
  11. RISPERIDONE [Concomitant]
     Indication: PRODUCT USED FOR UNKNOWN INDICATION

REACTIONS (3)
  - Plasmablastic lymphoma [Recovered/Resolved]
  - Cushing^s syndrome [Recovered/Resolved]
  - Drug interaction [Recovered/Resolved]
